APPROVED DRUG PRODUCT: TYMLOS
Active Ingredient: ABALOPARATIDE
Strength: 3.12MG/1.56ML (2MG/ML)
Dosage Form/Route: SOLUTION;SUBCUTANEOUS
Application: N208743 | Product #001
Applicant: RADIUS HEALTH INC
Approved: Apr 28, 2017 | RLD: Yes | RS: Yes | Type: RX

PATENTS:
Patent 11680942 | Expires: Jan 10, 2040
Patent 8748382 | Expires: Oct 3, 2027
Patent 8748382 | Expires: Oct 3, 2027
Patent 11782041 | Expires: Apr 30, 2038
Patent 11782041 | Expires: Apr 30, 2038
Patent 7803770 | Expires: Apr 28, 2031
Patent RE49444 | Expires: Apr 28, 2031
Patent RE49444 | Expires: Apr 28, 2031
Patent 11255842 | Expires: Jan 10, 2040
Patent 8148333 | Expires: Nov 8, 2027
Patent 11977067 | Expires: Apr 30, 2038
Patent 10996208 | Expires: Apr 30, 2038